FAERS Safety Report 7156571-8 (Version None)
Quarter: 2010Q4

REPORT INFORMATION
  Report Type: 
  Country: None (occurrence: None)
  Receive Date: 20101214
  Receipt Date: 20091109
  Transmission Date: 20110411
  Serious: No
  Sender: FDA-Public Use
  Company Number: US-ASTRAZENECA-2009SE25355

PATIENT
  Age: 85 Year
  Sex: Female

DRUGS (4)
  1. CRESTOR [Suspect]
     Dosage: 1 ON SUNDAY AND 1 ON THURSDAY
     Route: 048
  2. NORVASC [Concomitant]
  3. MICARDIS [Concomitant]
  4. ATENOLOL [Concomitant]

REACTIONS (1)
  - BLOOD PRESSURE ABNORMAL [None]
